FAERS Safety Report 6120016-7 (Version None)
Quarter: 2009Q1

REPORT INFORMATION
  Report Type: 
  Country: None (occurrence: None)
  Receive Date: 20090316
  Receipt Date: 20081205
  Transmission Date: 20090719
  Serious: Yes (Death, Other)
  Sender: FDA-Public Use
  Company Number: US-PFIZER INC-2008091144

PATIENT
  Sex: Female
  Weight: 56.6 kg

DRUGS (5)
  1. GLUCOTROL XL [Suspect]
     Indication: TYPE 2 DIABETES MELLITUS
  2. COUMADIN [Suspect]
  3. COZAAR [Concomitant]
  4. METFORMIN [Concomitant]
  5. ACTOS [Concomitant]

REACTIONS (3)
  - ANAEMIA [None]
  - CEREBROVASCULAR ACCIDENT [None]
  - GASTROINTESTINAL HAEMORRHAGE [None]
